FAERS Safety Report 21101411 (Version 3)
Quarter: 2022Q3

REPORT INFORMATION
  Report Type: Report from Study
  Country: US (occurrence: US)
  Receive Date: 20220719
  Receipt Date: 20220901
  Transmission Date: 20221027
  Serious: Yes (Death, Hospitalization, Other)
  Sender: FDA-Public Use
  Company Number: US-OTSUKA-2022_009010AA

PATIENT
  Age: 84 Year
  Sex: Male
  Weight: 75.8 kg

DRUGS (1)
  1. CEDAZURIDINE\DECITABINE [Suspect]
     Active Substance: CEDAZURIDINE\DECITABINE
     Indication: Myelodysplastic syndrome
     Dosage: 1 DF, QD (ON DAYS 1-3 OF EACH 28 DAY CYCLE)
     Route: 048
     Dates: start: 20220203

REACTIONS (6)
  - Parkinson^s disease [Unknown]
  - Haemoglobin decreased [Unknown]
  - Cardiac failure congestive [Fatal]
  - Muscular weakness [Unknown]
  - Asthenia [Unknown]
  - Product use issue [Unknown]

NARRATIVE: CASE EVENT DATE: 20220203
